FAERS Safety Report 5252437-9 (Version None)
Quarter: 2007Q1

REPORT INFORMATION
  Report Type: 
  Country: None (occurrence: None)
  Receive Date: 20070301
  Receipt Date: 20061108
  Transmission Date: 20070707
  Serious: Yes (Other)
  Sender: FDA-Public Use
  Company Number: US-BRISTOL-MYERS SQUIBB COMPANY-13571484

PATIENT

DRUGS (4)
  1. ERBITUX [Suspect]
     Route: 042
  2. ACETAMINOPHEN [Concomitant]
     Indication: PREMEDICATION
     Dates: start: 20061108
  3. BENADRYL [Concomitant]
     Indication: PREMEDICATION
     Dates: start: 20061108
  4. SOLU-MEDROL [Concomitant]
     Indication: PREMEDICATION
     Dates: start: 20061108

REACTIONS (5)
  - BLOOD PRESSURE DECREASED [None]
  - CHILLS [None]
  - DYSPNOEA [None]
  - OXYGEN SATURATION DECREASED [None]
  - TACHYCARDIA [None]
